FAERS Safety Report 18898029 (Version 8)
Quarter: 2021Q2

REPORT INFORMATION
  Report Type: Spontaneous
  Country: DE (occurrence: DE)
  Receive Date: 20210216
  Receipt Date: 20210618
  Transmission Date: 20210717
  Serious: Yes (Other)
  Sender: FDA-Public Use
  Company Number: NVSC2020DE316461

PATIENT
  Age: 76 Year
  Sex: Female
  Weight: 66 kg

DRUGS (25)
  1. FLUOROURACIL. [Suspect]
     Active Substance: FLUOROURACIL
     Dosage: 3840 MG
     Route: 042
     Dates: start: 20210324
  2. NOVAMIN [Concomitant]
     Indication: PAIN
     Dosage: 2000 MG, QD (500 MG, QID)
     Route: 048
     Dates: start: 2020
  3. VERGENTAN [Concomitant]
     Active Substance: ALIZAPRIDE HYDROCHLORIDE
     Indication: NAUSEA
     Dosage: 50 MILLIGRAM, AS NECESSARY
     Route: 048
     Dates: start: 20200910
  4. PANTOZOL [Concomitant]
     Active Substance: PANTOPRAZOLE SODIUM
     Indication: CHRONIC GASTRITIS
     Dosage: 40 MG, QD
     Route: 048
     Dates: start: 20200910
  5. FLUOROURACIL. [Suspect]
     Active Substance: FLUOROURACIL
     Indication: COLORECTAL CANCER METASTATIC
     Dosage: 4080 MG
     Route: 042
     Dates: start: 20200902
  6. FOLINIC ACID [Suspect]
     Active Substance: LEUCOVORIN
     Indication: COLORECTAL CANCER METASTATIC
     Dosage: 680 MG
     Route: 065
     Dates: start: 20200902
  7. FOLINIC ACID [Suspect]
     Active Substance: LEUCOVORIN
     Dosage: 640 MG
     Route: 065
     Dates: start: 20210324
  8. MINOCYCLINE [Concomitant]
     Active Substance: MINOCYCLINE HYDROCHLORIDE
     Indication: PROPHYLAXIS
     Dosage: 50 MILLIGRAM, BID
     Route: 048
     Dates: start: 20200902
  9. AKYNZEO [Concomitant]
     Active Substance: NETUPITANT\PALONOSETRON HYDROCHLORIDE
     Indication: PRODUCT USED FOR UNKNOWN INDICATION
     Dosage: 300 MILLIGRAM (PER CYCLE)
     Route: 048
     Dates: start: 20200902
  10. SIMVASTATIN. [Concomitant]
     Active Substance: SIMVASTATIN
     Indication: METABOLIC DISORDER
     Dosage: 20 MG, QD
     Route: 048
  11. BRICANYL [Concomitant]
     Active Substance: TERBUTALINE SULFATE
     Indication: BRONCHOSPASM
     Dosage: 0.5 MG, QD
     Route: 058
     Dates: start: 20201028, end: 20201028
  12. LOPERAMID [Concomitant]
     Active Substance: LOPERAMIDE
     Indication: DIARRHOEA
     Dosage: 1.86 MILLIGRAM, AS NECESSARY
     Route: 048
     Dates: start: 20200903
  13. LOPERAMID [Concomitant]
     Active Substance: LOPERAMIDE
     Dosage: 0.5 MG, QD
     Route: 058
     Dates: start: 20201028, end: 20201028
  14. RIOPAN [Concomitant]
     Indication: ABDOMINAL PAIN UPPER
     Dosage: 10 ML, PRN
     Route: 048
     Dates: start: 20201014
  15. STANGYL [Concomitant]
     Active Substance: TRIMIPRAMINE MALEATE
     Indication: DEPRESSION
     Dosage: 100 MG, QD (50 MG, BID)
     Route: 048
  16. PREDNISOLON [Concomitant]
     Active Substance: PREDNISOLONE
     Indication: BRONCHOSPASM
     Dosage: 200 MG, QD
     Route: 042
     Dates: start: 20201028, end: 20201028
  17. OXALIPLATIN. [Suspect]
     Active Substance: OXALIPLATIN
     Dosage: 144 MG
     Route: 065
     Dates: start: 20200916
  18. VECTIBIX [Suspect]
     Active Substance: PANITUMUMAB
     Dosage: 360 MG
     Route: 042
     Dates: start: 20210324
  19. MCP [Concomitant]
     Active Substance: METOCLOPRAMIDE HYDROCHLORIDE
     Indication: NAUSEA
     Dosage: 10 MG, PRN
     Route: 048
     Dates: start: 20200902
  20. AMLODIPIN [Concomitant]
     Active Substance: AMLODIPINE BESYLATE
     Indication: HYPERTENSION
     Dosage: 2.5 MG, QD
     Route: 048
     Dates: start: 2020, end: 20210118
  21. OXALIPLATIN. [Suspect]
     Active Substance: OXALIPLATIN
     Indication: COLORECTAL CANCER METASTATIC
     Dosage: 115 MG
     Route: 065
     Dates: start: 20200902
  22. METOPROLOL. [Concomitant]
     Active Substance: METOPROLOL
     Indication: HYPERTENSION
     Dosage: 50 MG, QD
     Route: 048
     Dates: start: 2020
  23. JONOSTERIL [Concomitant]
     Indication: BLOOD CREATININE INCREASED
     Dosage: 1 UNK,QD (500?1500 ML, QD)
     Route: 065
     Dates: start: 20201104
  24. VECTIBIX [Suspect]
     Active Substance: PANITUMUMAB
     Indication: COLORECTAL CANCER METASTATIC
     Dosage: 400 MG
     Route: 042
     Dates: start: 20200902
  25. DEXAMETHASON [Concomitant]
     Active Substance: DEXAMETHASONE
     Indication: PRODUCT USED FOR UNKNOWN INDICATION
     Dosage: 8 MG, PER CYCLE
     Route: 042
     Dates: start: 20200902

REACTIONS (3)
  - Hypomagnesaemia [Not Recovered/Not Resolved]
  - Hypokalaemia [Recovered/Resolved]
  - Hypocalcaemia [Not Recovered/Not Resolved]

NARRATIVE: CASE EVENT DATE: 20201104
